FAERS Safety Report 15988733 (Version 1)
Quarter: 2019Q1

REPORT INFORMATION
  Report Type: Spontaneous
  Country: FR (occurrence: FR)
  Receive Date: 20190221
  Receipt Date: 20190221
  Transmission Date: 20190418
  Serious: Yes (Other)
  Sender: FDA-Public Use
  Company Number: FR-TEVA-2019-FR-1002261

PATIENT
  Age: 46 Year
  Sex: Female
  Weight: 60 kg

DRUGS (2)
  1. IBUPROFEN. [Concomitant]
     Active Substance: IBUPROFEN
     Dosage: TAKEN BY ORAL ROUTE AT TIME OF PAINFUL MENSTRUATIONS.
     Route: 048
     Dates: start: 20190103, end: 20190114
  2. COPAXONE [Suspect]
     Active Substance: GLATIRAMER ACETATE
     Indication: RELAPSING-REMITTING MULTIPLE SCLEROSIS
     Route: 058
     Dates: start: 20190103, end: 20190114

REACTIONS (18)
  - Monocyte count increased [Recovered/Resolved]
  - Uhthoff^s phenomenon [Recovered/Resolved]
  - Hepatocellular injury [Recovered/Resolved]
  - Aspartate aminotransferase increased [Recovered/Resolved]
  - Platelet count increased [Not Recovered/Not Resolved]
  - Vomiting [Recovered/Resolved]
  - Neutrophil count increased [Not Recovered/Not Resolved]
  - Gamma-glutamyltransferase increased [Not Recovered/Not Resolved]
  - Diarrhoea [Recovered/Resolved]
  - Hyperthermia [Recovered/Resolved]
  - White blood cell count increased [Not Recovered/Not Resolved]
  - Alanine aminotransferase increased [Not Recovered/Not Resolved]
  - Headache [Recovered/Resolved]
  - Red blood cell count decreased [Not Recovered/Not Resolved]
  - C-reactive protein increased [Recovered/Resolved]
  - Chills [Recovered/Resolved]
  - Mean cell volume increased [Not Recovered/Not Resolved]
  - Basophil count increased [Not Recovered/Not Resolved]

NARRATIVE: CASE EVENT DATE: 20190109
